FAERS Safety Report 8291115-9 (Version None)
Quarter: 2012Q2

REPORT INFORMATION
  Report Type: 
  Country: None (occurrence: None)
  Receive Date: 20120417
  Receipt Date: 20110906
  Transmission Date: 20120825
  Serious: No
  Sender: FDA-Public Use
  Company Number: US-ASTRAZENECA-2011SE18631

PATIENT
  Age: 61 Year
  Sex: Male
  Weight: 100.2 kg

DRUGS (9)
  1. NEXIUM [Suspect]
     Indication: DYSPHAGIA
     Route: 048
     Dates: start: 20010101
  2. ALLEGRA-D 12 HOUR [Concomitant]
  3. MICARDIS HCT [Concomitant]
  4. PROCARDIA XL [Concomitant]
  5. VICODIN [Concomitant]
     Indication: PAIN
  6. POTASSIUM CHLORIDE [Concomitant]
  7. MEDICATION FOR HYPERTENSION [Concomitant]
  8. CIPROFLOXACIN HCL [Concomitant]
  9. CRESTOR [Concomitant]

REACTIONS (6)
  - DYSURIA [None]
  - NEPHROLITHIASIS [None]
  - CALCULUS URETERIC [None]
  - BACK PAIN [None]
  - POLLAKIURIA [None]
  - OFF LABEL USE [None]
